FAERS Safety Report 8461180-4 (Version None)
Quarter: 2012Q2

REPORT INFORMATION
  Report Type: 
  Country: None (occurrence: None)
  Receive Date: 20120625
  Receipt Date: 20120618
  Transmission Date: 20120825
  Serious: No
  Sender: FDA-Public Use
  Company Number: US-PFIZER INC-2012147878

PATIENT
  Sex: Female

DRUGS (1)
  1. CORTEF [Suspect]
     Dosage: UNK

REACTIONS (4)
  - THROAT IRRITATION [None]
  - DYSPEPSIA [None]
  - DRUG INEFFECTIVE [None]
  - OESOPHAGEAL PAIN [None]
